FAERS Safety Report 17732763 (Version 1)
Quarter: 2020Q2

REPORT INFORMATION
  Report Type: Spontaneous
  Country: GB (occurrence: GB)
  Receive Date: 20200501
  Receipt Date: 20200501
  Transmission Date: 20200714
  Serious: Yes (Other)
  Sender: FDA-Public Use
  Company Number: NVSC2020GB114883

PATIENT
  Age: 41 Year
  Sex: Female

DRUGS (3)
  1. IDARUBICIN [Suspect]
     Active Substance: IDARUBICIN
     Indication: ACUTE MYELOMONOCYTIC LEUKAEMIA
     Dosage: UNK
     Route: 065
  2. CYTARABINE. [Suspect]
     Active Substance: CYTARABINE
     Indication: ACUTE MYELOMONOCYTIC LEUKAEMIA
     Dosage: UNK
     Route: 065
  3. FLUDARABINE PHOSPHATE. [Suspect]
     Active Substance: FLUDARABINE PHOSPHATE
     Indication: ACUTE MYELOMONOCYTIC LEUKAEMIA
     Dosage: UNK
     Route: 065

REACTIONS (6)
  - Dysuria [Unknown]
  - Haemorrhagic ovarian cyst [Unknown]
  - Abdominal pain lower [Unknown]
  - Product use in unapproved indication [Unknown]
  - Ovarian cyst ruptured [Unknown]
  - Back pain [Unknown]
